FAERS Safety Report 6079598-6 (Version None)
Quarter: 2009Q1

REPORT INFORMATION
  Report Type: 
  Country: None (occurrence: None)
  Receive Date: 20090217
  Receipt Date: 20090212
  Transmission Date: 20090719
  Serious: Yes (Other)
  Sender: FDA-Public Use
  Company Number: BR-JNJFOC-20090203583

PATIENT
  Sex: Female

DRUGS (1)
  1. MICRONOR [Suspect]
     Indication: CONTRACEPTION
     Route: 048

REACTIONS (1)
  - LEUKOPENIA [None]
